FAERS Safety Report 23206085 (Version 1)
Quarter: 2023Q4

REPORT INFORMATION
  Report Type: Spontaneous
  Country: JP (occurrence: JP)
  Receive Date: 20231120
  Receipt Date: 20231120
  Transmission Date: 20240110
  Serious: No
  Sender: FDA-Public Use
  Company Number: JP-PFIZER INC-PV202300185623

PATIENT

DRUGS (2)
  1. NGENLA [Suspect]
     Active Substance: SOMATROGON-GHLA
     Indication: Growth hormone deficiency
     Route: 058
  2. NGENLA [Suspect]
     Active Substance: SOMATROGON-GHLA
     Indication: Dwarfism

REACTIONS (1)
  - Injection site pain [Unknown]
